FAERS Safety Report 9010623 (Version 2)
Quarter: 2013Q1

REPORT INFORMATION
  Report Type: Spontaneous
  Country: US (occurrence: US)
  Receive Date: 20130109
  Receipt Date: 20130114
  Transmission Date: 20140127
  Serious: Yes (Hospitalization)
  Sender: FDA-Public Use
  Company Number: US-JNJFOC-20130103428

PATIENT
  Age: 71 Year
  Sex: Female
  Weight: 61.15 kg

DRUGS (15)
  1. DOXORUBICIN HYDROCHLORIDE(CAELYX) [Suspect]
     Indication: OVARIAN CANCER
     Route: 042
     Dates: start: 20121114, end: 20121114
  2. COUMADIN [Concomitant]
     Indication: THROMBOSIS PROPHYLAXIS
     Dosage: 2.5 TO 5 MG
     Route: 048
     Dates: start: 201011
  3. BACTRIM DS [Concomitant]
     Indication: URINARY TRACT INFECTION
     Dosage: 800/160
     Route: 048
     Dates: start: 20121127
  4. ZANTAC [Concomitant]
     Indication: PREMEDICATION
     Route: 042
     Dates: start: 20121114, end: 20121114
  5. ZANTAC [Concomitant]
     Indication: PREMEDICATION
     Route: 042
     Dates: start: 20121114, end: 20121114
  6. BENADRYL [Concomitant]
     Indication: PREMEDICATION
     Route: 042
     Dates: start: 20121114, end: 20121114
  7. BENADRYL [Concomitant]
     Indication: PREMEDICATION
     Route: 042
     Dates: start: 20121114, end: 20121114
  8. SOLUCORTEF [Concomitant]
     Indication: PREMEDICATION
     Route: 042
     Dates: start: 20121114, end: 20121114
  9. SOLUCORTEF [Concomitant]
     Indication: PREMEDICATION
     Route: 042
     Dates: start: 20121114, end: 20121114
  10. MORPHINE [Concomitant]
     Route: 065
  11. DOCUSATE [Concomitant]
     Route: 065
  12. VANCO [Concomitant]
     Route: 065
  13. ZOSYN [Concomitant]
     Route: 065
  14. OMEPRAZOLE [Concomitant]
     Route: 065
  15. TYLENOL [Concomitant]
     Route: 065

REACTIONS (8)
  - Anaemia [Unknown]
  - Coagulopathy [Recovering/Resolving]
  - Leukopenia [Unknown]
  - Thrombocytopenia [Unknown]
  - Pyrexia [Unknown]
  - Hypotension [Recovered/Resolved]
  - Pancytopenia [Unknown]
  - Sepsis [Unknown]
